FAERS Safety Report 8030404-X (Version None)
Quarter: 2012Q1

REPORT INFORMATION
  Report Type: 
  Country: None (occurrence: None)
  Receive Date: 20120109
  Receipt Date: 20120109
  Transmission Date: 20120608
  Serious: Yes (Other)
  Sender: FDA-Public Use
  Company Number: None

PATIENT
  Age: 30 Year
  Sex: Female
  Weight: 70.306 kg

DRUGS (3)
  1. SPIRONOLACTONE [Suspect]
     Indication: ACNE
     Dosage: 50MG
     Route: 048
     Dates: start: 20111228, end: 20120107
  2. AMBIEN [Concomitant]
     Route: 048
  3. TYLENOL W/ CODEINE [Concomitant]

REACTIONS (14)
  - FEELING COLD [None]
  - VOMITING [None]
  - EAR DISCOMFORT [None]
  - HYPOAESTHESIA [None]
  - HYPERACUSIS [None]
  - PAIN [None]
  - BLOOD PRESSURE INCREASED [None]
  - NECK PAIN [None]
  - TINNITUS [None]
  - HEADACHE [None]
  - EAR PAIN [None]
  - EPISTAXIS [None]
  - URINE COLOUR ABNORMAL [None]
  - DIZZINESS [None]
